FAERS Safety Report 12012597 (Version 1)
Quarter: 2016Q1

REPORT INFORMATION
  Report Type: Spontaneous
  Country: IT (occurrence: IT)
  Receive Date: 20160205
  Receipt Date: 20160205
  Transmission Date: 20160526
  Serious: Yes (Other)
  Sender: FDA-Public Use
  Company Number: IT-TEVA-629359ACC

PATIENT
  Age: 56 Year
  Sex: Male
  Weight: 89 kg

DRUGS (6)
  1. CALCIUM LEVOFOLINATE [Concomitant]
     Active Substance: LEVOLEUCOVORIN CALCIUM
     Indication: PRODUCT USED FOR UNKNOWN INDICATION
     Dosage: 200 MG/M2
     Route: 042
     Dates: start: 20160105, end: 20160105
  2. FLUOROURACIL. [Concomitant]
     Active Substance: FLUOROURACIL
     Indication: GASTROINTESTINAL NEOPLASM
     Dosage: 400 MG/M2
     Route: 040
     Dates: start: 20160105, end: 20160105
  3. FLUOROURACIL. [Concomitant]
     Active Substance: FLUOROURACIL
     Indication: GASTROINTESTINAL NEOPLASM
     Dosage: 2400 MG/M2
     Route: 042
     Dates: start: 20160105, end: 20160106
  4. ONDANSETRON HYDROCHLORIDE. [Concomitant]
     Active Substance: ONDANSETRON HYDROCHLORIDE
     Indication: NAUSEA
     Dosage: 8 MG
     Route: 042
     Dates: start: 20160105, end: 20160105
  5. OXALIPLATIN. [Suspect]
     Active Substance: OXALIPLATIN
     Indication: GASTROINTESTINAL NEOPLASM
     Dosage: 85 MG/M2 CYCLICAL
     Route: 042
     Dates: start: 20160105, end: 20160105
  6. DEXAMETHASONE. [Concomitant]
     Active Substance: DEXAMETHASONE
     Indication: PRODUCT USED FOR UNKNOWN INDICATION
     Dosage: 8 MG
     Route: 042
     Dates: start: 20160105, end: 20160105

REACTIONS (5)
  - Hypotension [Recovered/Resolved]
  - Cold sweat [Recovered/Resolved]
  - Presyncope [Recovered/Resolved]
  - Abdominal pain upper [Recovered/Resolved]
  - Tremor [Recovered/Resolved]

NARRATIVE: CASE EVENT DATE: 20160105
